FAERS Safety Report 17107420 (Version 6)
Quarter: 2020Q1

REPORT INFORMATION
  Report Type: Spontaneous
  Country: US (occurrence: US)
  Receive Date: 20191203
  Receipt Date: 20200320
  Transmission Date: 20200409
  Serious: Yes (Congenital Anomaly, Other)
  Sender: FDA-Public Use
  Company Number: NVSC2019US050152

PATIENT
  Sex: Male

DRUGS (1)
  1. ZOFRAN [Suspect]
     Active Substance: ONDANSETRON HYDROCHLORIDE
     Indication: FOETAL EXPOSURE DURING PREGNANCY
     Dosage: MOTHER DOSE: 08 MG, QD
     Route: 064

REACTIONS (93)
  - Atrial septal defect [Unknown]
  - Right-to-left cardiac shunt [Unknown]
  - Pyelocaliectasis [Unknown]
  - Bronchiolitis [Unknown]
  - Enterovirus infection [Unknown]
  - Deformity [Unknown]
  - Injury [Not Recovered/Not Resolved]
  - Anhedonia [Unknown]
  - Rhinorrhoea [Unknown]
  - Hypoalbuminaemia [Unknown]
  - Nasal flaring [Unknown]
  - Hypersensitivity [Unknown]
  - Hypocalcaemia [Unknown]
  - Ventricular septal defect [Unknown]
  - Choking [Unknown]
  - Failure to thrive [Unknown]
  - Arrhythmia [Unknown]
  - Foetal exposure during pregnancy [Unknown]
  - Cough [Unknown]
  - Dyspnoea [Unknown]
  - Rash [Unknown]
  - Left ventricular dysfunction [Unknown]
  - Ocular hyperaemia [Unknown]
  - Urine output decreased [Unknown]
  - Dehydration [Unknown]
  - Gastroenteritis [Unknown]
  - Herpes zoster [Unknown]
  - Weight gain poor [Unknown]
  - Ventricular hypoplasia [Unknown]
  - Patent ductus arteriosus [Unknown]
  - Univentricular heart [Unknown]
  - Congenital pulmonary valve atresia [Unknown]
  - Left-to-right cardiac shunt [Unknown]
  - Meningitis [Unknown]
  - Pneumothorax [Unknown]
  - Cardiac failure [Unknown]
  - Pain [Unknown]
  - Left ventricular enlargement [Unknown]
  - Cardiomegaly [Unknown]
  - Abdominal pain [Unknown]
  - Constipation [Unknown]
  - Cyanosis [Unknown]
  - Hypophosphataemia [Unknown]
  - Congenital tricuspid valve atresia [Unknown]
  - Apnoea [Unknown]
  - Pericardial effusion [Unknown]
  - Seizure [Unknown]
  - Emotional distress [Unknown]
  - Tachycardia [Recovered/Resolved]
  - Retching [Unknown]
  - Dysphagia [Unknown]
  - Malnutrition [Unknown]
  - Diarrhoea [Unknown]
  - Upper respiratory tract infection [Unknown]
  - Arthropod bite [Unknown]
  - Bacteraemia [Unknown]
  - Pulmonary hypertension [Unknown]
  - Mitral valve incompetence [Unknown]
  - Appendicitis [Unknown]
  - Pneumonia [Unknown]
  - Gastrooesophageal reflux disease [Unknown]
  - Hypophagia [Unknown]
  - Impetigo [Unknown]
  - Folliculitis [Unknown]
  - Respiratory distress [Unknown]
  - Myocardial infarction [Unknown]
  - Intestinal obstruction [Unknown]
  - Croup infectious [Unknown]
  - Aortic valve incompetence [Unknown]
  - Rickets [Unknown]
  - Pyrexia [Unknown]
  - Urinary tract infection [Unknown]
  - Otitis media [Unknown]
  - Obstructive airways disorder [Unknown]
  - Lung disorder [Unknown]
  - Rhinovirus infection [Unknown]
  - Vomiting [Unknown]
  - Heart disease congenital [Unknown]
  - Impaired gastric emptying [Unknown]
  - Acute respiratory failure [Unknown]
  - Hypoxia [Unknown]
  - Foreign body aspiration [Unknown]
  - Left ventricular dilatation [Unknown]
  - Feeding intolerance [Unknown]
  - Hyperhidrosis [Unknown]
  - Abscess [Unknown]
  - Lymphopenia [Recovered/Resolved]
  - Pharyngitis [Unknown]
  - Pyloric stenosis [Unknown]
  - Gastrointestinal haemorrhage [Unknown]
  - Cellulitis [Unknown]
  - Dermatitis diaper [Unknown]
  - Viral infection [Unknown]
